FAERS Safety Report 7507139-2 (Version None)
Quarter: 2011Q2

REPORT INFORMATION
  Report Type: 
  Country: None (occurrence: None)
  Receive Date: 20110526
  Receipt Date: 20110511
  Transmission Date: 20111010
  Serious: Yes (Other)
  Sender: FDA-Public Use
  Company Number: GB-BAYER-2011-041892

PATIENT
  Sex: Female

DRUGS (1)
  1. RENNIE PEPPERMINT [Suspect]
     Dosage: DAILY DOSE 12 DF

REACTIONS (1)
  - DRUG DEPENDENCE [None]
